FAERS Safety Report 15625565 (Version 1)
Quarter: 2018Q4

REPORT INFORMATION
  Report Type: Spontaneous
  Country: US (occurrence: US)
  Receive Date: 20181115
  Receipt Date: 20181115
  Transmission Date: 20190205
  Serious: Yes (Death)
  Sender: FDA-Public Use
  Company Number: None

PATIENT
  Age: 76 Year
  Sex: Male
  Weight: 76.9 kg

DRUGS (3)
  1. CEFTRIAXONE. [Suspect]
     Active Substance: CEFTRIAXONE
     Indication: URINARY TRACT INFECTION
     Route: 040
     Dates: start: 20181022, end: 20181022
  2. NORMAL SALINE 0.9% [Concomitant]
     Dates: start: 20181022, end: 20181022
  3. ACETAMINOPHEN 1000MG [Concomitant]
     Dates: start: 20181022, end: 20181022

REACTIONS (8)
  - Unresponsive to stimuli [None]
  - Pulseless electrical activity [None]
  - Cyanosis [None]
  - Apnoea [None]
  - Torsade de pointes [None]
  - Bradycardia [None]
  - Pneumothorax [None]
  - Seizure like phenomena [None]

NARRATIVE: CASE EVENT DATE: 20181022
